FAERS Safety Report 5140976-0 (Version None)
Quarter: 2006Q4

REPORT INFORMATION
  Report Type: 
  Country: None (occurrence: None)
  Receive Date: 20061027
  Receipt Date: 20061027
  Transmission Date: 20070319
  Serious: Yes (Life-Threatening, Hospitalization, Other)
  Sender: FDA-Public Use
  Company Number: None

PATIENT
  Age: 48 Year
  Sex: Female
  Weight: 58.9676 kg

DRUGS (3)
  1. XANAX [Suspect]
     Indication: ANOSMIA
     Dosage: TAPERING DOWN EACH DAY BY 1ML 3 TIMES A DAY BUCCAL
     Route: 002
     Dates: start: 20050409
  2. ZITHROMAX [Suspect]
  3. ZICAM [Suspect]

REACTIONS (12)
  - ACTIVITIES OF DAILY LIVING IMPAIRED [None]
  - AGEUSIA [None]
  - AMNESIA [None]
  - ANOSMIA [None]
  - BLOOD PRESSURE IMMEASURABLE [None]
  - DRUG DEPENDENCE [None]
  - DRUG WITHDRAWAL SYNDROME [None]
  - INCOHERENT [None]
  - MALAISE [None]
  - MUSCLE DISORDER [None]
  - NASOPHARYNGITIS [None]
  - UNEVALUABLE EVENT [None]
